FAERS Safety Report 7625503-8 (Version None)
Quarter: 2011Q3

REPORT INFORMATION
  Report Type: 
  Country: None (occurrence: None)
  Receive Date: 20110721
  Receipt Date: 20100902
  Transmission Date: 20111222
  Serious: No
  Sender: FDA-Public Use
  Company Number: US-KINGPHARMUSA00001-K201001107

PATIENT
  Sex: Female

DRUGS (1)
  1. SEPTRA [Suspect]
     Indication: SEPSIS
     Dosage: UNK

REACTIONS (1)
  - PARAESTHESIA [None]
